FAERS Safety Report 24559572 (Version 5)
Quarter: 2025Q1

REPORT INFORMATION
  Report Type: Report from Study
  Country: AR (occurrence: AR)
  Receive Date: 20241029
  Receipt Date: 20250312
  Transmission Date: 20250409
  Serious: Yes (Other)
  Sender: AMGEN
  Company Number: AR-AMGEN-ARGSL2024107301

PATIENT
  Age: 56 Year
  Sex: Male

DRUGS (2)
  1. VECTIBIX [Suspect]
     Active Substance: PANITUMUMAB
     Indication: Colorectal cancer
     Route: 065
     Dates: start: 20240515, end: 2024
  2. VECTIBIX [Suspect]
     Active Substance: PANITUMUMAB
     Route: 065
     Dates: start: 2024

REACTIONS (17)
  - Urinary tract infection [Unknown]
  - Urethritis noninfective [Unknown]
  - Metastases to pelvis [Unknown]
  - Colostomy [Unknown]
  - Intestinal obstruction [Unknown]
  - Frequent bowel movements [Not Recovered/Not Resolved]
  - Skin reaction [Unknown]
  - Skin discolouration [Unknown]
  - Constipation [Unknown]
  - Diarrhoea [Unknown]
  - Pyrexia [Unknown]
  - Acne [Unknown]
  - Pharyngitis [Unknown]
  - Gastrointestinal inflammation [Unknown]
  - Flatulence [Unknown]
  - Lymphadenopathy [Unknown]
  - Abdominal pain [Unknown]

NARRATIVE: CASE EVENT DATE: 20240101
